FAERS Safety Report 6367308-4 (Version None)
Quarter: 2009Q3

REPORT INFORMATION
  Report Type: 
  Country: None (occurrence: None)
  Receive Date: 20090821
  Receipt Date: 20090716
  Transmission Date: 20100115
  Serious: No
  Sender: FDA-Public Use
  Company Number: 8049122

PATIENT
  Sex: Female

DRUGS (2)
  1. CIMZIA [Suspect]
     Dates: start: 20090315
  2. PREDNISONE [Concomitant]

REACTIONS (1)
  - DRUG INEFFECTIVE [None]
